FAERS Safety Report 19237805 (Version 2)
Quarter: 2021Q2

REPORT INFORMATION
  Report Type: Spontaneous
  Country: US (occurrence: US)
  Receive Date: 20210510
  Receipt Date: 20210624
  Transmission Date: 20210717
  Serious: No
  Sender: FDA-Public Use
  Company Number: US-BAUSCH-BL-2021-011933

PATIENT
  Age: 71 Year
  Sex: Female
  Weight: 90.8 kg

DRUGS (9)
  1. BENZALKONIUM CHLORIDE. [Suspect]
     Active Substance: BENZALKONIUM CHLORIDE
     Indication: OCULAR HYPERAEMIA
     Dosage: STARTED ABOUT 6 MONTHS AGO?AS NEEDED
     Route: 047
     Dates: start: 2020
  2. BLINK TEARS [Suspect]
     Active Substance: POLYETHYLENE GLYCOL 400
     Indication: EYE PRURITUS
     Dosage: AS NEEDED
     Route: 047
  3. BLINK TEARS [Suspect]
     Active Substance: POLYETHYLENE GLYCOL 400
     Indication: LACRIMATION INCREASED
  4. SYSTANE (HYPROMELLOSE 2910 (4000 MPA.S)) [Suspect]
     Active Substance: HYPROMELLOSE 2910 (4000 MPA.S)
     Indication: EYE PRURITUS
     Dosage: AS NEEDED
     Route: 047
  5. SYSTANE (HYPROMELLOSE 2910 (4000 MPA.S)) [Suspect]
     Active Substance: HYPROMELLOSE 2910 (4000 MPA.S)
     Indication: FOREIGN BODY SENSATION IN EYES
  6. BI?EST [Concomitant]
     Indication: PRODUCT USED FOR UNKNOWN INDICATION
  7. SYSTANE (HYPROMELLOSE 2910 (4000 MPA.S)) [Suspect]
     Active Substance: HYPROMELLOSE 2910 (4000 MPA.S)
     Indication: LACRIMATION INCREASED
  8. BLINK TEARS [Suspect]
     Active Substance: POLYETHYLENE GLYCOL 400
     Indication: FOREIGN BODY SENSATION IN EYES
  9. LUMIFY [Suspect]
     Active Substance: BRIMONIDINE TARTRATE
     Indication: OCULAR HYPERAEMIA
     Dosage: STARTED A YEAR AGO?AS REQUIRED
     Route: 047
     Dates: start: 2020

REACTIONS (1)
  - Reaction to preservatives [Recovered/Resolved]

NARRATIVE: CASE EVENT DATE: 2020
